FAERS Safety Report 13192447 (Version 1)
Quarter: 2017Q1

REPORT INFORMATION
  Report Type: Spontaneous
  Country: CN (occurrence: CN)
  Receive Date: 20170207
  Receipt Date: 20170207
  Transmission Date: 20170428
  Serious: Yes (Hospitalization)
  Sender: FDA-Public Use
  Company Number: CN-BAYER-2017-022431

PATIENT
  Age: 40 Year
  Sex: Female
  Weight: 50 kg

DRUGS (1)
  1. CLARITYNE 10 MG [Suspect]
     Active Substance: LORATADINE
     Indication: PRURITUS
     Dosage: 1 DF, QD
     Route: 048
     Dates: start: 20160320, end: 20160320

REACTIONS (2)
  - Chest discomfort [Recovered/Resolved]
  - Palpitations [Recovered/Resolved]

NARRATIVE: CASE EVENT DATE: 20160320
